FAERS Safety Report 4569279-X (Version None)
Quarter: 2005Q1

REPORT INFORMATION
  Report Type: 
  Country: None (occurrence: None)
  Receive Date: 20050203
  Receipt Date: 20050120
  Transmission Date: 20050727
  Serious: Yes (Hospitalization)
  Sender: FDA-Public Use
  Company Number: GB-GLAXOSMITHKLINE-B0365540A

PATIENT
  Age: 1 Year
  Sex: Female

DRUGS (3)
  1. ACETAMINOPHEN [Suspect]
     Route: 048
  2. IBUPROFEN [Concomitant]
     Route: 048
  3. CEFUROXIME SODIUM [Concomitant]
     Indication: PNEUMONIA
     Route: 042

REACTIONS (1)
  - HYPOTHERMIA [None]
